FAERS Safety Report 16068363 (Version 1)
Quarter: 2019Q1

REPORT INFORMATION
  Report Type: Spontaneous
  Country: DE (occurrence: DE)
  Receive Date: 20190313
  Receipt Date: 20190313
  Transmission Date: 20190418
  Serious: Yes (Other)
  Sender: FDA-Public Use
  Company Number: DE-TEVA-2019-DE-1022868

PATIENT
  Age: 78 Year
  Sex: Male
  Weight: 70 kg

DRUGS (12)
  1. TOREM 10 MG [Concomitant]
     Active Substance: TORSEMIDE
     Dosage: 1-1/2-0
  2. MONO-EMBOLEX 8000 I.E. [Concomitant]
     Dosage: 1 DOSAGE FORMS DAILY; 0-0-1 TO INR AT THE FINISH
  3. ENTRESTO [Concomitant]
     Active Substance: SACUBITRIL\VALSARTAN
     Indication: CARDIAC FAILURE
     Dosage: 1-0-1 (49/51 MG)
     Route: 048
     Dates: start: 2007
  4. ENTRESTO [Concomitant]
     Active Substance: SACUBITRIL\VALSARTAN
     Dosage: 1-0-1 (24/26 MG), MEDICATION AT DISCHARGE
  5. REPAGLINID [Concomitant]
     Active Substance: REPAGLINIDE
     Dosage: 3G-2G-2G
  6. CLOPIDOGREL [Suspect]
     Active Substance: CLOPIDOGREL BISULFATE
     Indication: ANTICOAGULANT THERAPY
     Route: 048
     Dates: start: 20180629, end: 20181230
  7. SIMVASTATIN. [Concomitant]
     Active Substance: SIMVASTATIN
     Dosage: 40 MILLIGRAM DAILY;
  8. ALLOPURINOL 100 MG [Concomitant]
     Active Substance: ALLOPURINOL
     Dosage: .5 DOSAGE FORMS DAILY; 0-0-1/2
  9. SPIRONOLACTON HEXAL 50 MG [Suspect]
     Active Substance: SPIRONOLACTONE
     Dosage: 50 MILLIGRAM DAILY;
     Route: 048
     Dates: start: 20180712
  10. ASS 100 [Concomitant]
     Active Substance: ASPIRIN
     Dosage: 100 MILLIGRAM DAILY;
  11. BELOC-ZOK 95 MG [Suspect]
     Active Substance: METOPROLOL SUCCINATE
     Indication: HYPERTENSION
     Dosage: 1/2-0-1/2
     Dates: start: 1986
  12. MARCUMAR [Concomitant]
     Active Substance: PHENPROCOUMON
     Dosage: NACH INR

REACTIONS (10)
  - Pruritus [Not Recovered/Not Resolved]
  - Pemphigoid [Not Recovered/Not Resolved]
  - Rash [Not Recovered/Not Resolved]
  - Skin reaction [Not Recovered/Not Resolved]
  - Dyspnoea exertional [Unknown]
  - Cough [Not Recovered/Not Resolved]
  - Rash vesicular [Not Recovered/Not Resolved]
  - Weight bearing difficulty [Unknown]
  - Skin exfoliation [Not Recovered/Not Resolved]
  - Oedema peripheral [Not Recovered/Not Resolved]

NARRATIVE: CASE EVENT DATE: 2018
